FAERS Safety Report 7328980-5 (Version None)
Quarter: 2011Q1

REPORT INFORMATION
  Report Type: 
  Country: None (occurrence: None)
  Receive Date: 20110225
  Receipt Date: 20110225
  Transmission Date: 20110831
  Serious: Yes (Hospitalization)
  Sender: FDA-Public Use
  Company Number: None

PATIENT
  Sex: 0
  Weight: 116 kg

DRUGS (1)
  1. BELATACEPT 250 MG VIALS (BRISTOL-MYERS SQUIBB) [Suspect]
     Indication: IMMUNOSUPPRESSION
     Dosage: 5 MG/KG
     Dates: start: 20101202

REACTIONS (4)
  - ESCHERICHIA URINARY TRACT INFECTION [None]
  - BLOOD CREATININE INCREASED [None]
  - INFLUENZA [None]
  - ESCHERICHIA BACTERAEMIA [None]
